FAERS Safety Report 8447598-4 (Version None)
Quarter: 2012Q2

REPORT INFORMATION
  Report Type: 
  Country: None (occurrence: None)
  Receive Date: 20120619
  Receipt Date: 20120608
  Transmission Date: 20120825
  Serious: Yes (Other)
  Sender: FDA-Public Use
  Company Number: JP-ASTRAZENECA-2012SE39945

PATIENT
  Age: 78 Year
  Sex: Male

DRUGS (1)
  1. MEROPENEM [Suspect]
     Route: 042
     Dates: start: 20120605

REACTIONS (1)
  - HEPATIC FUNCTION ABNORMAL [None]
